FAERS Safety Report 13290808 (Version 1)
Quarter: 2017Q1

REPORT INFORMATION
  Report Type: Spontaneous
  Country: US (occurrence: US)
  Receive Date: 20170303
  Receipt Date: 20170303
  Transmission Date: 20170428
  Serious: No
  Sender: FDA-Public Use
  Company Number: US-PFIZER INC-2017088160

PATIENT
  Age: 34 Year
  Sex: Female
  Weight: 52.62 kg

DRUGS (5)
  1. PERCOCET /00446701/ [Concomitant]
     Active Substance: ACETAMINOPHEN\OXYCODONE HYDROCHLORIDE\OXYCODONE TEREPHTHALATE
     Indication: MUSCLE SPASMS
  2. MOTRIN [Concomitant]
     Active Substance: IBUPROFEN
     Indication: MUSCLE SPASMS
     Dosage: 800 MG, UNK
  3. PHENERGAN [Concomitant]
     Active Substance: PROMETHAZINE HYDROCHLORIDE
     Indication: NAUSEA
  4. MISOPROSTOL. [Suspect]
     Active Substance: MISOPROSTOL
     Indication: ABORTION INDUCED
     Dosage: 800 UG, THREE TIMES (200 MCG, FOUR AT A TIME ORALLY OR VAGINALLY AND HAD TO DO THAT 3 TIMES)
     Dates: start: 20170214, end: 20170220
  5. MIFEPRISTONE [Concomitant]
     Active Substance: MIFEPRISTONE
     Indication: ABORTION

REACTIONS (2)
  - Product use issue [Unknown]
  - Drug ineffective for unapproved indication [Unknown]
